FAERS Safety Report 4305728-X (Version None)
Quarter: 2004Q1

REPORT INFORMATION
  Report Type: 
  Country: None (occurrence: None)
  Receive Date: 20040225
  Receipt Date: 20040211
  Transmission Date: 20041129
  Serious: Yes (Other)
  Sender: FDA-Public Use
  Company Number: USA040259191

PATIENT
  Sex: Female

DRUGS (3)
  1. EVISTA [Suspect]
     Dosage: 60 MG/DAY
  2. CALCIUM [Concomitant]
  3. ONE-A-DAY 55 PLUS [Concomitant]

REACTIONS (6)
  - HUMERUS FRACTURE [None]
  - OSTEOPENIA [None]
  - SPINAL FRACTURE [None]
  - TOOTH LOSS [None]
  - ULCER [None]
  - UPPER LIMB FRACTURE [None]
